FAERS Safety Report 14910139 (Version 1)
Quarter: 2018Q2

REPORT INFORMATION
  Report Type: Report from Study
  Country: BR (occurrence: BR)
  Receive Date: 20180517
  Receipt Date: 20180517
  Transmission Date: 20180711
  Serious: Yes (Hospitalization)
  Sender: FDA-Public Use
  Company Number: BR-UCBSA-2018020386

PATIENT
  Age: 7 Year
  Sex: Male

DRUGS (4)
  1. DEPAKOTE [Concomitant]
     Active Substance: DIVALPROEX SODIUM
     Indication: SEIZURE
     Route: 048
  2. LACOSAMIDE. [Suspect]
     Active Substance: LACOSAMIDE
     Indication: SEIZURE
     Dosage: UNK
     Dates: start: 201606
  3. KEPPRA [Suspect]
     Active Substance: LEVETIRACETAM
     Indication: SEIZURE
     Dosage: STRENGTH: 250MG, 5 TABLETS DAILY (1250 MG DAILY)
     Route: 048
  4. FRISIUM [Concomitant]
     Active Substance: CLOBAZAM
     Indication: SEIZURE
     Route: 048

REACTIONS (3)
  - Drug ineffective [Unknown]
  - Off label use [Unknown]
  - Medical device removal [Unknown]

NARRATIVE: CASE EVENT DATE: 201606
